FAERS Safety Report 6504916-1 (Version None)
Quarter: 2009Q4

REPORT INFORMATION
  Report Type: 
  Country: None (occurrence: None)
  Receive Date: 20091218
  Receipt Date: 20091210
  Transmission Date: 20100525
  Serious: Yes (Hospitalization)
  Sender: FDA-Public Use
  Company Number: CH-ROCHE-674134

PATIENT
  Age: 66 Year
  Sex: Male

DRUGS (2)
  1. TAMIFLU [Suspect]
     Indication: INFLUENZA
     Dosage: FREQUENCY: EVERY 12 HOURS FOR 5 DAYS
     Route: 065
     Dates: start: 20091105, end: 20091109
  2. TAMIFLU [Suspect]
     Dosage: EVERY 12 HOURS
     Route: 065
     Dates: start: 20091112, end: 20091202

REACTIONS (2)
  - BACTERIAL INFECTION [None]
  - PNEUMONIA [None]
